FAERS Safety Report 8145410-4 (Version None)
Quarter: 2012Q1

REPORT INFORMATION
  Report Type: 
  Country: None (occurrence: None)
  Receive Date: 20120217
  Receipt Date: 20120215
  Transmission Date: 20120608
  Serious: Yes (Other)
  Sender: FDA-Public Use
  Company Number: US-PFIZER INC-2010123229

PATIENT
  Sex: Male
  Weight: 122 kg

DRUGS (13)
  1. NORVASC [Suspect]
     Indication: HYPERTENSION
     Dosage: 10 MG, DAILY
     Route: 048
     Dates: start: 20100401
  2. WELLBUTRIN XL [Concomitant]
     Dosage: UNK
  3. KLONOPIN [Concomitant]
     Indication: ANXIETY
     Dosage: 1.5 MG, DAILY
     Dates: start: 20100901
  4. GEODON [Suspect]
     Indication: SCHIZOAFFECTIVE DISORDER
     Dosage: 60 MG, DAILY
     Dates: start: 20100201
  5. PROLIXIN [Concomitant]
     Dosage: 5 MG, DAILY
  6. GEODON [Suspect]
     Dosage: 240 MG, DAILY
  7. GEODON [Suspect]
     Dosage: UNK
  8. GEODON [Suspect]
     Indication: SCHIZOPHRENIA
     Dosage: 120 MG, DAILY
  9. GEODON [Suspect]
     Dosage: 180 MG, DAILY
  10. LEXIVA [Concomitant]
     Dosage: UNK
  11. TRAZODONE [Concomitant]
     Dosage: UNK
  12. ATIVAN [Concomitant]
     Indication: ANXIETY
     Dosage: 1 MG, DAILY
     Dates: start: 20100601, end: 20100901
  13. COZAAR [Concomitant]
     Indication: HYPERTENSION
     Dosage: 50 MG, DAILY

REACTIONS (6)
  - WEIGHT INCREASED [None]
  - HYPERTENSION [None]
  - BLOOD GLUCOSE INCREASED [None]
  - BLOOD CHOLESTEROL INCREASED [None]
  - WEIGHT DECREASED [None]
  - ERECTILE DYSFUNCTION [None]
